FAERS Safety Report 7875355-6 (Version None)
Quarter: 2011Q4

REPORT INFORMATION
  Report Type: 
  Country: None (occurrence: None)
  Receive Date: 20111031
  Receipt Date: 20111026
  Transmission Date: 20120403
  Serious: Yes (Hospitalization)
  Sender: FDA-Public Use
  Company Number: US-GLAXOSMITHKLINE-A0950896A

PATIENT
  Age: 32 Year
  Sex: Female
  Weight: 100 kg

DRUGS (13)
  1. FLOLAN [Suspect]
     Indication: PULMONARY ARTERIAL HYPERTENSION
     Dosage: 35NGKM PER DAY
     Route: 042
     Dates: start: 20080502
  2. CLARITIN [Concomitant]
     Dosage: 10MG PER DAY
  3. POTASSIUM [Concomitant]
     Dosage: 20MEQ PER DAY
  4. LASIX [Concomitant]
     Dosage: 40MG PER DAY
  5. COUMADIN [Concomitant]
  6. CITALOPRAM HYDROBROMIDE [Concomitant]
     Dosage: 10MG PER DAY
  7. LORTAB [Concomitant]
  8. FAMOTIDINE [Concomitant]
     Dosage: 40MG PER DAY
  9. DOCUSATE [Concomitant]
     Dosage: 250MG PER DAY
  10. DIGOXIN [Concomitant]
     Dosage: 250MCG PER DAY
  11. PATANASE [Concomitant]
  12. REVATIO [Concomitant]
     Dosage: 40MG THREE TIMES PER DAY
  13. LETAIRIS [Concomitant]
     Dosage: 10MG PER DAY

REACTIONS (2)
  - PNEUMOTHORAX [None]
  - LUNG DISORDER [None]
